FAERS Safety Report 4646528-0 (Version None)
Quarter: 2005Q2

REPORT INFORMATION
  Report Type: 
  Country: None (occurrence: None)
  Receive Date: 20050427
  Receipt Date: 20040825
  Transmission Date: 20051028
  Serious: No
  Sender: FDA-Public Use
  Company Number: US-GLAXOSMITHKLINE-A0523455A

PATIENT
  Age: 70 Year
  Sex: Female

DRUGS (3)
  1. FLOVENT [Suspect]
     Route: 055
     Dates: start: 19980101
  2. ALBUTEROL [Concomitant]
  3. ATROVENT [Concomitant]

REACTIONS (3)
  - COUGH [None]
  - FATIGUE [None]
  - PHARMACEUTICAL PRODUCT COMPLAINT [None]
